FAERS Safety Report 16022001 (Version 1)
Quarter: 2019Q2

REPORT INFORMATION
  Report Type: Spontaneous
  Country: US (occurrence: US)
  Receive Date: 20190228
  Receipt Date: 20190228
  Transmission Date: 20190711
  Serious: Yes (Life-Threatening)
  Sender: FDA-Public Use
  Company Number: None

PATIENT
  Age: 20 Year
  Sex: Male
  Weight: 47.7 kg

DRUGS (5)
  1. PENTASA [Suspect]
     Active Substance: MESALAMINE
     Indication: CROHN^S DISEASE
  2. IRON [Concomitant]
     Active Substance: IRON
  3. ASMANEX [Concomitant]
     Active Substance: MOMETASONE FUROATE
  4. VITAMIN D NOS [Concomitant]
     Active Substance: VITAMIN D NOS
  5. FLOVENT [Concomitant]
     Active Substance: FLUTICASONE PROPIONATE

REACTIONS (1)
  - Product formulation issue [None]

NARRATIVE: CASE EVENT DATE: 20190227
